FAERS Safety Report 8332853-9 (Version None)
Quarter: 2012Q2

REPORT INFORMATION
  Report Type: 
  Country: None (occurrence: None)
  Receive Date: 20120503
  Receipt Date: 20120420
  Transmission Date: 20120825
  Serious: Yes (Other)
  Sender: FDA-Public Use
  Company Number: US-UCBSA-052164

PATIENT
  Sex: Female

DRUGS (6)
  1. STALEVO 100 [Concomitant]
     Route: 048
     Dates: start: 20110118
  2. REQUIP XL [Concomitant]
     Indication: PARKINSON'S DISEASE
     Route: 048
     Dates: start: 20110614, end: 20110622
  3. STALEVO 100 [Concomitant]
     Route: 048
     Dates: start: 20110118
  4. ROTIGOTINE [Suspect]
     Indication: PARKINSON'S DISEASE
     Route: 062
     Dates: start: 20110614
  5. STALEVO 100 [Concomitant]
     Indication: PARKINSON'S DISEASE
     Route: 048
     Dates: start: 20110118
  6. APOKYN [Concomitant]
     Indication: PARKINSON'S DISEASE
     Dates: start: 20101207

REACTIONS (1)
  - URINARY TRACT INFECTION [None]
